FAERS Safety Report 10560375 (Version 3)
Quarter: 2014Q4

REPORT INFORMATION
  Report Type: Spontaneous
  Country: FR (occurrence: FR)
  Receive Date: 20141103
  Receipt Date: 20141111
  Transmission Date: 20150529
  Serious: Yes (Hospitalization, Other)
  Sender: FDA-Public Use
  Company Number: FR-PFIZER INC-HQWYE447105DEC03

PATIENT
  Age: 7 Year
  Sex: Male
  Weight: 23 kg

DRUGS (2)
  1. MAXILASE [Suspect]
     Active Substance: PANCRELIPASE
     Indication: INFLUENZA
     Dosage: UNK
     Route: 048
     Dates: start: 20031008, end: 20031015
  2. ADVIL [Suspect]
     Active Substance: IBUPROFEN
     Indication: INFLUENZA
     Dosage: UNK
     Route: 048
     Dates: start: 20031008, end: 20031015

REACTIONS (3)
  - Staphylococcal sepsis [Unknown]
  - Stevens-Johnson syndrome [Recovered/Resolved]
  - Septic shock [Unknown]

NARRATIVE: CASE EVENT DATE: 20031011
